FAERS Safety Report 17271551 (Version 1)
Quarter: 2020Q1

REPORT INFORMATION
  Report Type: Report from Study
  Country: None (occurrence: US)
  Receive Date: 20200115
  Receipt Date: 20200115
  Transmission Date: 20200409
  Serious: Yes (Other)
  Sender: FDA-Public Use
  Company Number: US-ABBVIE-19K-163-2952827-00

PATIENT
  Age: 45 Year
  Sex: Female

DRUGS (1)
  1. HUMIRA [Suspect]
     Active Substance: ADALIMUMAB
     Indication: ANKYLOSING SPONDYLITIS
     Dosage: CITRATE FREE
     Route: 058
     Dates: start: 20190905

REACTIONS (7)
  - Ventricular extrasystoles [Not Recovered/Not Resolved]
  - Injection site haemorrhage [Unknown]
  - Injection site papule [Unknown]
  - Arrhythmia [Unknown]
  - Injection site bruising [Unknown]
  - Lupus-like syndrome [Unknown]
  - Injection site mass [Unknown]

NARRATIVE: CASE EVENT DATE: 2019
